FAERS Safety Report 21693761 (Version 2)
Quarter: 2022Q4

REPORT INFORMATION
  Report Type: Report from Study
  Country: FR (occurrence: FR)
  Receive Date: 20221207
  Receipt Date: 20221223
  Transmission Date: 20230113
  Serious: Yes (Death, Other)
  Sender: FDA-Public Use
  Company Number: FR-GLAXOSMITHKLINE-FR2022EME180517

PATIENT

DRUGS (3)
  1. BELANTAMAB MAFODOTIN [Suspect]
     Active Substance: BELANTAMAB MAFODOTIN
     Indication: Plasma cell myeloma
     Dosage: 2.5 MG/KG, WE, (2.5 MG/KG/DOSE 1 DOSE/WEEK 1 WEEK(S)/CYCLE)
     Dates: end: 20201022
  2. MELPHALAN [Concomitant]
     Active Substance: MELPHALAN
     Indication: Product used for unknown indication
     Dosage: 8 MG, 8 MG/DOSE 3 DOSES/WEEK 1 WEEK(S)/CYCLE
  3. DEXAMETHASONE [Concomitant]
     Active Substance: DEXAMETHASONE
     Indication: Product used for unknown indication
     Dosage: 20 MG, 20 MG/DOSE 3 DOSES/WEEK 1 WEEK(S)/CYCLE

REACTIONS (1)
  - Death [Fatal]

NARRATIVE: CASE EVENT DATE: 20201022
